FAERS Safety Report 15023483 (Version 1)
Quarter: 2018Q2

REPORT INFORMATION
  Report Type: Spontaneous
  Country: US (occurrence: US)
  Receive Date: 20180524
  Receipt Date: 20180524
  Transmission Date: 20180711
  Serious: No
  Sender: FDA-Public Use
  Company Number: None

PATIENT
  Age: 58 Year
  Sex: Female
  Weight: 84.8 kg

DRUGS (1)
  1. ASPIRIN. [Suspect]
     Active Substance: ASPIRIN
     Dates: end: 20180423

REACTIONS (14)
  - Cough [None]
  - Osteosclerosis [None]
  - Decreased appetite [None]
  - General physical health deterioration [None]
  - Malignant pleural effusion [None]
  - Hepatic lesion [None]
  - Sinusitis [None]
  - Computerised tomogram thorax abnormal [None]
  - Metastases to lung [None]
  - Loss of personal independence in daily activities [None]
  - Weight decreased [None]
  - Pulmonary mass [None]
  - Mobility decreased [None]
  - Dyspnoea [None]

NARRATIVE: CASE EVENT DATE: 20180515
